FAERS Safety Report 8232537-1 (Version None)
Quarter: 2012Q1

REPORT INFORMATION
  Report Type: 
  Country: None (occurrence: None)
  Receive Date: 20120320
  Receipt Date: 20120313
  Transmission Date: 20120608
  Serious: Yes (Other)
  Sender: FDA-Public Use
  Company Number: 2012HGS-003381

PATIENT
  Age: 47 Year
  Sex: Female
  Weight: 70.7611 kg

DRUGS (6)
  1. BENLYSTA [Suspect]
     Indication: SYSTEMIC LUPUS ERYTHEMATOSUS
     Dosage: 1 IN 28 D, INTRAVENOUS DRIP
     Route: 041
     Dates: start: 20120208
  2. ZOLOFT [Concomitant]
  3. CALCITRATE (CALCIUM CITRATE) (CALCIUM CITRATE) [Concomitant]
  4. LISINOPRIL [Concomitant]
  5. PREDNISONE [Concomitant]
  6. METHOTREXATE [Concomitant]

REACTIONS (2)
  - DISEASE RECURRENCE [None]
  - HERPES ZOSTER [None]
